FAERS Safety Report 5044503-8 (Version None)
Quarter: 2006Q2

REPORT INFORMATION
  Report Type: 
  Country: None (occurrence: None)
  Receive Date: 20060601
  Receipt Date: 20060327
  Transmission Date: 20061013
  Serious: No
  Sender: FDA-Public Use
  Company Number: US200603006412

PATIENT
  Age: 57 Year
  Sex: Female

DRUGS (1)
  1. CYMBALTA [Suspect]
     Indication: DEPRESSION
     Dates: start: 20050101

REACTIONS (8)
  - BALANCE DISORDER [None]
  - CHEST PAIN [None]
  - DEAFNESS [None]
  - DIZZINESS [None]
  - FALL [None]
  - FEELING ABNORMAL [None]
  - NAUSEA [None]
  - TINNITUS [None]
